FAERS Safety Report 4309178-1 (Version None)
Quarter: 2004Q1

REPORT INFORMATION
  Report Type: 
  Country: None (occurrence: None)
  Receive Date: 20040301
  Receipt Date: 20040216
  Transmission Date: 20041129
  Serious: Yes (Death, Life-Threatening)
  Sender: FDA-Public Use
  Company Number: F01200400288

PATIENT
  Age: 57 Year
  Sex: Male

DRUGS (3)
  1. (OXALIPLATIN) - SOLUTION - 130 MG/M2 [Suspect]
     Indication: RECTAL CANCER
     Dosage: 130 MG/M2 Q3W, 1000 MG/M2 TWICE A DAY GIVEN ORALLY FOR 14 DAYS FOLLOWED BY 7 DAYS REST; INTRAVENOUS
     Route: 042
     Dates: start: 20040113, end: 20040113
  2. (CAPECITABINE) - TABLET - 2000 MG/M2 [Suspect]
     Dosage: Q3W; ORAL (2 WEEKS - TIME TO ONSET: 2 WEEKS
     Route: 048
     Dates: start: 20040113, end: 20040127
  3. GLICLAZIDE [Concomitant]

REACTIONS (9)
  - BLOOD CREATININE INCREASED [None]
  - DIARRHOEA [None]
  - HAEMODYNAMIC INSTABILITY [None]
  - INTERNATIONAL NORMALISED RATIO INCREASED [None]
  - METABOLIC ACIDOSIS [None]
  - MULTI-ORGAN FAILURE [None]
  - NEUTROPENIC SEPSIS [None]
  - PYREXIA [None]
  - TROPONIN I INCREASED [None]
